FAERS Safety Report 15069190 (Version 1)
Quarter: 2018Q2

REPORT INFORMATION
  Report Type: Spontaneous
  Country: US (occurrence: US)
  Receive Date: 20180626
  Receipt Date: 20180626
  Transmission Date: 20180711
  Serious: No
  Sender: FDA-Public Use
  Company Number: US-AMGEN-USASP2017103697

PATIENT
  Age: 63 Year
  Sex: Female
  Weight: 79.2 kg

DRUGS (1)
  1. NEULASTA [Suspect]
     Active Substance: PEGFILGRASTIM
     Indication: PROPHYLAXIS
     Dosage: 6 MG, AFTER CHEMO
     Route: 058

REACTIONS (2)
  - Application site haemorrhage [Recovered/Resolved]
  - Unintentional medical device removal [Unknown]

NARRATIVE: CASE EVENT DATE: 20170628
